FAERS Safety Report 15206459 (Version 3)
Quarter: 2019Q4

REPORT INFORMATION
  Report Type: Spontaneous
  Country: CA (occurrence: CA)
  Receive Date: 20180727
  Receipt Date: 20191113
  Transmission Date: 20200122
  Serious: No
  Sender: FDA-Public Use
  Company Number: CA-AMGEN-CANSP2018100979

PATIENT

DRUGS (17)
  1. ENBREL [Suspect]
     Active Substance: ETANERCEPT
     Indication: EXPOSURE DURING PREGNANCY
     Dosage: UNK
     Route: 064
  2. HYDROXYCHLOROQUINE [Suspect]
     Active Substance: HYDROXYCHLOROQUINE
     Indication: MATERNAL EXPOSURE DURING BREAST FEEDING
     Dosage: UNK
     Route: 063
  3. PREDNISONE. [Concomitant]
     Active Substance: PREDNISONE
     Indication: MATERNAL EXPOSURE DURING BREAST FEEDING
     Dosage: UNK
     Route: 063
  4. SULFASALAZINE. [Concomitant]
     Active Substance: SULFASALAZINE
     Indication: MATERNAL EXPOSURE DURING BREAST FEEDING
     Dosage: UNK
     Route: 063
  5. HYDROXYCHLOROQUINE [Suspect]
     Active Substance: HYDROXYCHLOROQUINE
     Indication: EXPOSURE DURING PREGNANCY
     Dosage: UNK
     Route: 064
  6. CERTOLIZUMAB PEGOL [Suspect]
     Active Substance: CERTOLIZUMAB PEGOL
     Indication: EXPOSURE DURING PREGNANCY
     Dosage: UNK
     Route: 063
  7. CERTOLIZUMAB PEGOL [Suspect]
     Active Substance: CERTOLIZUMAB PEGOL
     Indication: MATERNAL EXPOSURE DURING BREAST FEEDING
     Dosage: UNK
     Route: 063
  8. METHOTREXATE. [Suspect]
     Active Substance: METHOTREXATE
     Indication: MATERNAL EXPOSURE DURING BREAST FEEDING
     Dosage: UNK
     Route: 063
  9. METHOTREXATE. [Suspect]
     Active Substance: METHOTREXATE
     Indication: EXPOSURE DURING PREGNANCY
     Dosage: UNK
     Route: 064
  10. PREDNISONE. [Concomitant]
     Active Substance: PREDNISONE
     Indication: EXPOSURE DURING PREGNANCY
     Dosage: UNK
     Route: 064
  11. SULFASALAZINE. [Concomitant]
     Active Substance: SULFASALAZINE
     Indication: EXPOSURE DURING PREGNANCY
     Dosage: UNK
     Route: 064
  12. ENBREL [Suspect]
     Active Substance: ETANERCEPT
     Indication: MATERNAL EXPOSURE DURING BREAST FEEDING
     Dosage: UNK
     Route: 063
  13. CERTOLIZUMAB PEGOL [Suspect]
     Active Substance: CERTOLIZUMAB PEGOL
     Dosage: 400 MILLIGRAM, CYCLICAL
     Route: 064
  14. LEFLUNOMIDE. [Suspect]
     Active Substance: LEFLUNOMIDE
     Indication: MATERNAL EXPOSURE DURING BREAST FEEDING
     Dosage: UNK
     Route: 063
  15. HYDROXYCHLOROQUINE SULFATE. [Suspect]
     Active Substance: HYDROXYCHLOROQUINE SULFATE
     Indication: EXPOSURE DURING PREGNANCY
     Dosage: UNK
     Route: 064
  16. CERTOLIZUMAB PEGOL [Suspect]
     Active Substance: CERTOLIZUMAB PEGOL
     Dosage: UNK
     Route: 063
  17. LEFLUNOMIDE. [Suspect]
     Active Substance: LEFLUNOMIDE
     Indication: EXPOSURE DURING PREGNANCY
     Dosage: 20 MILLIGRAM, QD
     Route: 064

REACTIONS (2)
  - Exposure via breast milk [Unknown]
  - Maternal exposure during pregnancy [Unknown]
